FAERS Safety Report 7571922-8 (Version None)
Quarter: 2011Q2

REPORT INFORMATION
  Report Type: 
  Country: None (occurrence: None)
  Receive Date: 20110624
  Receipt Date: 20101209
  Transmission Date: 20111010
  Serious: No
  Sender: FDA-Public Use
  Company Number: A0898891A

PATIENT
  Age: 36 Year
  Sex: Male
  Weight: 85.5 kg

DRUGS (3)
  1. ZYRTEC [Concomitant]
  2. VERAMYST [Suspect]
     Route: 045
     Dates: start: 20100901
  3. XOPENEX [Concomitant]

REACTIONS (1)
  - WHEEZING [None]
